FAERS Safety Report 7050288-6 (Version None)
Quarter: 2010Q4

REPORT INFORMATION
  Report Type: 
  Country: None (occurrence: None)
  Receive Date: 20101018
  Receipt Date: 20100916
  Transmission Date: 20110411
  Serious: No
  Sender: FDA-Public Use
  Company Number: US-BAYER-201020133BCC

PATIENT
  Age: 31 Year
  Sex: Female

DRUGS (3)
  1. FINACEA [Suspect]
     Indication: ACNE
     Dosage: COUNT BOTTLE UNKNOWN
     Route: 061
     Dates: start: 20100907, end: 20100912
  2. FINACEA [Suspect]
     Dosage: COUNT BOTTLE UNKNOWN
     Route: 061
     Dates: start: 20100915, end: 20100915
  3. EPIDUO [Concomitant]
     Route: 061
     Dates: start: 20100902

REACTIONS (2)
  - SEBORRHOEA [None]
  - SKIN DISORDER [None]
